FAERS Safety Report 25548700 (Version 2)
Quarter: 2025Q3

REPORT INFORMATION
  Report Type: Spontaneous
  Country: SA (occurrence: SA)
  Receive Date: 20250714
  Receipt Date: 20250721
  Transmission Date: 20251020
  Serious: Yes (Life-Threatening, Hospitalization)
  Sender: MYLAN
  Company Number: SA-MYLANLABS-2025M1058001

PATIENT
  Age: 28 Year
  Sex: Female
  Weight: 53 kg

DRUGS (3)
  1. EPINEPHRINE [Suspect]
     Active Substance: EPINEPHRINE
     Indication: Drug therapy
     Dosage: 0.05 MICROGRAM/KILOGRAM, QMINUTE
  2. EPINEPHRINE [Suspect]
     Active Substance: EPINEPHRINE
     Dosage: 0.3 MICROGRAM/KILOGRAM, QMINUTE
  3. NOREPINEPHRINE [4]
     Active Substance: NOREPINEPHRINE
     Indication: Drug therapy

REACTIONS (2)
  - Sympathomimetic effect [Recovered/Resolved]
  - Product dispensing error [Recovered/Resolved]
